FAERS Safety Report 11491841 (Version 1)
Quarter: 2015Q3

REPORT INFORMATION
  Report Type: Spontaneous
  Country: US (occurrence: US)
  Receive Date: 20150910
  Receipt Date: 20150910
  Transmission Date: 20151125
  Serious: No
  Sender: FDA-Public Use
  Company Number: US-MERZ NORTH AMERICA, INC.-15MRZ-00475

PATIENT
  Sex: Female

DRUGS (1)
  1. XEOMIN [Suspect]
     Active Substance: INCOBOTULINUMTOXINA
     Route: 030
     Dates: start: 20150908, end: 20150908

REACTIONS (5)
  - Diarrhoea [Unknown]
  - Paraesthesia [Unknown]
  - Palpitations [Unknown]
  - Insomnia [Unknown]
  - Secretion discharge [Unknown]

NARRATIVE: CASE EVENT DATE: 201509
